FAERS Safety Report 18900663 (Version 1)
Quarter: 2021Q1

REPORT INFORMATION
  Report Type: Spontaneous
  Country: US (occurrence: US)
  Receive Date: 20210216
  Receipt Date: 20210216
  Transmission Date: 20210420
  Serious: Yes (Other)
  Sender: FDA-Public Use
  Company Number: US-BIOHAVEN PHARMACEUTICALS-2021BHV00146

PATIENT
  Sex: Female

DRUGS (1)
  1. NURTEC ODT [Suspect]
     Active Substance: RIMEGEPANT SULFATE
     Indication: MIGRAINE WITHOUT AURA
     Dosage: UNK

REACTIONS (2)
  - Hallucination [Unknown]
  - Agitation [Unknown]

NARRATIVE: CASE EVENT DATE: 2021
